FAERS Safety Report 7255870-9 (Version None)
Quarter: 2011Q1

REPORT INFORMATION
  Report Type: 
  Country: None (occurrence: None)
  Receive Date: 20110129
  Receipt Date: 20100623
  Transmission Date: 20110831
  Serious: No
  Sender: FDA-Public Use
  Company Number: US-ABBOTT-10P-163-0637427-00

PATIENT
  Sex: Female
  Weight: 76.726 kg

DRUGS (2)
  1. HUMIRA [Suspect]
     Dates: start: 20100401
  2. HUMIRA [Suspect]
     Indication: RHEUMATOID ARTHRITIS
     Route: 058
     Dates: start: 20090103

REACTIONS (2)
  - PSORIASIS [None]
  - RASH [None]
